FAERS Safety Report 9145201 (Version 1)
Quarter: 2013Q1

REPORT INFORMATION
  Report Type: Spontaneous
  Country: US (occurrence: US)
  Receive Date: 20130307
  Receipt Date: 20130307
  Transmission Date: 20140127
  Serious: No
  Sender: FDA-Public Use
  Company Number: US-BIOGENIDEC-2013BI021155

PATIENT
  Sex: Female

DRUGS (3)
  1. TYSABRI [Suspect]
     Indication: MULTIPLE SCLEROSIS
     Route: 042
     Dates: start: 20070307
  2. PROPRANOLOL [Concomitant]
     Indication: TREMOR
  3. PROPRANOLOL [Concomitant]
     Indication: TREMOR

REACTIONS (9)
  - Mental status changes [Not Recovered/Not Resolved]
  - Skin haemorrhage [Recovered/Resolved]
  - Insomnia [Recovered/Resolved]
  - Speech disorder [Not Recovered/Not Resolved]
  - Fall [Recovered/Resolved]
  - Body temperature decreased [Not Recovered/Not Resolved]
  - Aphasia [Not Recovered/Not Resolved]
  - Multiple sclerosis relapse [Not Recovered/Not Resolved]
  - Fatigue [Not Recovered/Not Resolved]
